FAERS Safety Report 17476871 (Version 3)
Quarter: 2020Q2

REPORT INFORMATION
  Report Type: Report from Study
  Country: None (occurrence: US)
  Receive Date: 20200228
  Receipt Date: 20200603
  Transmission Date: 20200713
  Serious: Yes (Other)
  Sender: FDA-Public Use
  Company Number: US-ABBVIE-20K-163-3292204-00

PATIENT
  Sex: Male

DRUGS (3)
  1. VENCLEXTA [Suspect]
     Active Substance: VENETOCLAX
     Route: 048
  2. VENCLEXTA [Suspect]
     Active Substance: VENETOCLAX
     Indication: CHRONIC LYMPHOCYTIC LEUKAEMIA
     Route: 048
     Dates: start: 20191020
  3. VENCLEXTA [Suspect]
     Active Substance: VENETOCLAX
     Dosage: DOSE DECREASED
     Route: 048
     Dates: start: 2020

REACTIONS (3)
  - Diarrhoea [Unknown]
  - Asthenia [Unknown]
  - Immunodeficiency [Unknown]
